FAERS Safety Report 14025209 (Version 1)
Quarter: 2017Q3

REPORT INFORMATION
  Report Type: Report from Study
  Country: IT (occurrence: IT)
  Receive Date: 20170929
  Receipt Date: 20170929
  Transmission Date: 20171128
  Serious: Yes (Other)
  Sender: FDA-Public Use
  Company Number: IT-MYLANLABS-2017M1060570

PATIENT
  Age: 31 Year
  Sex: Female

DRUGS (4)
  1. VESSEL                             /00393001/ [Concomitant]
     Indication: PRODUCT USED FOR UNKNOWN INDICATION
  2. LEVOPRAID                          /01142501/ [Concomitant]
     Indication: PRODUCT USED FOR UNKNOWN INDICATION
  3. ESOMEPRAZOLE SODIUM. [Concomitant]
     Active Substance: ESOMEPRAZOLE SODIUM
     Indication: PRODUCT USED FOR UNKNOWN INDICATION
  4. SERTRALINE [Suspect]
     Active Substance: SERTRALINE HYDROCHLORIDE
     Indication: PANIC ATTACK
     Dosage: 1 DF DAILY
     Route: 048
     Dates: start: 20170829

REACTIONS (2)
  - Skin burning sensation [Unknown]
  - Nausea [Unknown]

NARRATIVE: CASE EVENT DATE: 20170831
